FAERS Safety Report 8999484 (Version 1)
Quarter: 2013Q1

REPORT INFORMATION
  Report Type: Report from Study
  Country: JP (occurrence: JP)
  Receive Date: 20130103
  Receipt Date: 20130103
  Transmission Date: 20140127
  Serious: Yes (Hospitalization)
  Sender: FDA-Public Use
  Company Number: JP-GLAXOSMITHKLINE-B0855600A

PATIENT
  Sex: Female
  Weight: 43 kg

DRUGS (14)
  1. TYKERB [Suspect]
     Indication: BREAST CANCER
     Dosage: 1250MG PER DAY
     Route: 048
     Dates: start: 20101113, end: 20110323
  2. TYKERB [Suspect]
     Indication: BREAST CANCER
     Dosage: 1000MG PER DAY
     Route: 048
     Dates: start: 20110324, end: 20110427
  3. XELODA [Suspect]
     Dosage: 3000MG PER DAY
     Route: 048
     Dates: start: 20101113, end: 20101126
  4. XELODA [Suspect]
     Dosage: 3000MG PER DAY
     Route: 048
     Dates: start: 20101204, end: 20101217
  5. XELODA [Suspect]
     Dosage: 3000MG PER DAY
     Route: 048
     Dates: start: 20101225, end: 20110107
  6. XELODA [Suspect]
     Dosage: 3000MG PER DAY
     Route: 048
     Dates: start: 20110115, end: 20110128
  7. XELODA [Suspect]
     Dosage: 3000MG PER DAY
     Route: 048
     Dates: start: 20110205, end: 20110323
  8. XELODA [Suspect]
     Dosage: 2400MG PER DAY
     Route: 048
     Dates: start: 20110324, end: 20110423
  9. DOXORUBICIN HYDROCHLORIDE [Concomitant]
     Indication: BREAST CANCER
     Dates: start: 20110502, end: 20110502
  10. AMLODIN [Concomitant]
     Indication: HYPERTENSION
     Route: 048
  11. BENZALIN [Concomitant]
     Indication: INSOMNIA
     Route: 048
  12. EVAMYL [Concomitant]
     Indication: INSOMNIA
     Route: 048
  13. MYSLEE [Concomitant]
     Indication: INSOMNIA
     Route: 048
  14. PYDOXAL [Concomitant]
     Route: 048
     Dates: start: 20101222

REACTIONS (1)
  - Pericardial effusion [Not Recovered/Not Resolved]
